FAERS Safety Report 17126022 (Version 1)
Quarter: 2019Q4

REPORT INFORMATION
  Report Type: Spontaneous
  Country: US (occurrence: US)
  Receive Date: 20191209
  Receipt Date: 20191209
  Transmission Date: 20200122
  Serious: No
  Sender: FDA-Public Use
  Company Number: US-SHIRE-US201939848

PATIENT

DRUGS (1)
  1. GATTEX [Suspect]
     Active Substance: TEDUGLUTIDE\WATER
     Indication: PRODUCT USED FOR UNKNOWN INDICATION
     Dosage: 0.380 UNIT UNKNOWN, 1X/DAY:QD
     Route: 058
     Dates: start: 20180417

REACTIONS (2)
  - Therapy non-responder [Unknown]
  - Inappropriate schedule of product administration [Unknown]
